FAERS Safety Report 20834347 (Version 2)
Quarter: 2023Q1

REPORT INFORMATION
  Report Type: Spontaneous
  Country: US (occurrence: US)
  Receive Date: 20220516
  Receipt Date: 20230210
  Transmission Date: 20230418
  Serious: No
  Sender: FDA-Public Use
  Company Number: US-KYOWAKIRIN-2022BKK007015

PATIENT

DRUGS (1)
  1. CRYSVITA [Suspect]
     Active Substance: BUROSUMAB-TWZA
     Indication: Phosphorus metabolism disorder
     Dosage: 60 MG, 1X/4 WEEKS
     Route: 058
     Dates: start: 20211104

REACTIONS (1)
  - Abscess [Unknown]
